FAERS Safety Report 9262461 (Version 4)
Quarter: 2013Q3

REPORT INFORMATION
  Report Type: Report from Study
  Country: DE (occurrence: DE)
  Receive Date: 20130430
  Receipt Date: 20130719
  Transmission Date: 20140515
  Serious: Yes (Hospitalization)
  Sender: FDA-Public Use
  Company Number: DE-BIOGENIDEC-2013BI037201

PATIENT
  Age: 36 Year
  Sex: Female

DRUGS (8)
  1. BG00012 [Suspect]
     Indication: MULTIPLE SCLEROSIS
     Route: 048
     Dates: start: 20090820
  2. PREGABALIN [Concomitant]
     Indication: ANXIETY DISORDER
     Dates: start: 20100213
  3. ETONOGESTREL [Concomitant]
     Indication: CONTRACEPTION
     Dates: start: 20100216
  4. LAMOTRIGIN [Concomitant]
     Indication: EPILEPSY
     Dates: start: 20080430
  5. LAMOTRIGIN [Concomitant]
     Indication: EPILEPSY
  6. KALIUM JODID [Concomitant]
     Indication: PROPHYLAXIS
     Dates: start: 2000
  7. KALIUM JODID [Concomitant]
     Indication: PROPHYLAXIS
  8. ATOSIL [Concomitant]
     Indication: ANXIETY DISORDER

REACTIONS (1)
  - Drug abuse [Recovered/Resolved]
